FAERS Safety Report 23978611 (Version 1)
Quarter: 2024Q2

REPORT INFORMATION
  Report Type: Spontaneous
  Country: RO (occurrence: RO)
  Receive Date: 20240614
  Receipt Date: 20240614
  Transmission Date: 20240716
  Serious: Yes (Hospitalization, Other)
  Sender: FDA-Public Use
  Company Number: RO-009507513-2406ROU001779

PATIENT
  Age: 41 Year
  Sex: Female

DRUGS (11)
  1. RALTEGRAVIR POTASSIUM [Suspect]
     Active Substance: RALTEGRAVIR POTASSIUM
     Indication: Antiretroviral therapy
     Dosage: UNK
     Route: 048
     Dates: start: 2015
  2. DORAVIRINE [Suspect]
     Active Substance: DORAVIRINE
     Indication: Antiretroviral therapy
     Route: 048
  3. EFAVIRENZ [Suspect]
     Active Substance: EFAVIRENZ
     Indication: Antiretroviral therapy
     Dosage: UNK
     Route: 048
     Dates: start: 201205, end: 2013
  4. ZIDOVUDINE [Suspect]
     Active Substance: ZIDOVUDINE
     Indication: Antiretroviral therapy
     Dosage: UNK
     Dates: start: 201205
  5. LAMIVUDINE [Suspect]
     Active Substance: LAMIVUDINE
     Indication: Antiretroviral therapy
     Dosage: UNK
     Dates: start: 201205
  6. ABACAVIR [Suspect]
     Active Substance: ABACAVIR
     Indication: Antiretroviral therapy
     Dosage: UNK
     Dates: start: 201205, end: 2013
  7. TENOFOVIR [Suspect]
     Active Substance: TENOFOVIR
     Indication: Antiretroviral therapy
     Dosage: UNK, BID
     Dates: start: 2013
  8. EMTRICITABINE [Suspect]
     Active Substance: EMTRICITABINE
     Indication: Antiretroviral therapy
     Dosage: UNK, BID
     Dates: start: 2013
  9. DARUNAVIR\RITONAVIR [Suspect]
     Active Substance: DARUNAVIR\RITONAVIR
     Indication: Antiretroviral therapy
     Dosage: UNK, BID
     Dates: start: 2013
  10. DARUNAVIR\RITONAVIR [Suspect]
     Active Substance: DARUNAVIR\RITONAVIR
     Dosage: 2 DOSAGE FORM (600/1000 UNITS NOT PROVIDED), BID
     Dates: start: 201311
  11. DARUNAVIR\RITONAVIR [Suspect]
     Active Substance: DARUNAVIR\RITONAVIR
     Dosage: DEESCALATION(800/1000 UNITS NOT PROVIDED), QD

REACTIONS (9)
  - Transient ischaemic attack [Unknown]
  - Coronary artery disease [Unknown]
  - Carotid arteriosclerosis [Unknown]
  - Cerebrovascular accident [Unknown]
  - Coma [Unknown]
  - Treatment failure [Unknown]
  - Hypertension [Unknown]
  - Dyslipidaemia [Unknown]
  - Weight increased [Recovering/Resolving]

NARRATIVE: CASE EVENT DATE: 20150101
